FAERS Safety Report 10866521 (Version 1)
Quarter: 2015Q1

REPORT INFORMATION
  Report Type: Report from Study
  Country: US (occurrence: US)
  Receive Date: 20150225
  Receipt Date: 20150225
  Transmission Date: 20150721
  Serious: Yes (Hospitalization)
  Sender: FDA-Public Use
  Company Number: US-ROCHE-1543155

PATIENT
  Age: 65 Year
  Sex: Female
  Weight: 80.97 kg

DRUGS (9)
  1. CARBOPLATIN. [Suspect]
     Active Substance: CARBOPLATIN
     Indication: BREAST CANCER
     Dosage: AUC 6 MG/ML/MIN IV OVER 30-60MIN ON DAY 1 Q3 WEEKS
     Route: 042
     Dates: start: 20141027
  2. CARBOPLATIN. [Suspect]
     Active Substance: CARBOPLATIN
     Dosage: CYCLE 2-6 (AUC 6 MG/ML/MIN IV OVER 30-60MIN ON DAY 1 Q3 WEEKS)?LAST DOSE ADMINISTERED ON 19/JAN/2015
     Route: 042
  3. PERTUZUMAB [Suspect]
     Active Substance: PERTUZUMAB
     Dosage: CYCLE 2-6 (420MG IV OVER 30-60 MIN ON DAY 1 Q3 WEEKS)?LAST DOSE ADMINISTERED ON 19/JAN/2015
     Route: 042
  4. DOCETAXEL. [Suspect]
     Active Substance: DOCETAXEL
     Indication: BREAST CANCER
     Dosage: CYCLE 1 OVER 60 MIN ON DAY 1
     Route: 042
     Dates: start: 20141027
  5. ARIMIDEX [Concomitant]
     Active Substance: ANASTROZOLE
     Route: 048
     Dates: start: 20141027
  6. DOCETAXEL. [Suspect]
     Active Substance: DOCETAXEL
     Dosage: CYCLE 2-6 (75MG/M2 IV OVER 60 MIN ON DAY 1 Q3 WEEKS)?LAST DOSE ADMINISTERED ON 19/JAN/2015?DOSE REDU
     Route: 042
  7. TRASTUZUMAB [Suspect]
     Active Substance: TRASTUZUMAB
     Indication: BREAST CANCER
     Dosage: CYCLE 1 OVER 90 MIN ON DAY 1
     Route: 042
     Dates: start: 20141027
  8. PERTUZUMAB [Suspect]
     Active Substance: PERTUZUMAB
     Indication: BREAST CANCER
     Dosage: CYCLE 1 OVER 60 MIN ON DAY 1
     Route: 042
     Dates: start: 20141027
  9. TRASTUZUMAB [Suspect]
     Active Substance: TRASTUZUMAB
     Dosage: CYCLE 2-6 (6MG/KG IV OVER 30-60 MIN ON DAY 1 Q3 WEEKS)?LAST DOSE ADMINISTERED ON 19/JAN/2015
     Route: 042

REACTIONS (1)
  - Enterocolitis infectious [Unknown]

NARRATIVE: CASE EVENT DATE: 20150121
